FAERS Safety Report 16508216 (Version 1)
Quarter: 2019Q3

REPORT INFORMATION
  Report Type: Spontaneous
  Country: US (occurrence: US)
  Receive Date: 20190702
  Receipt Date: 20190702
  Transmission Date: 20191004
  Serious: No
  Sender: FDA-Public Use
  Company Number: US-ROCHE-2152576

PATIENT
  Sex: Female
  Weight: 61.29 kg

DRUGS (5)
  1. GABAPENTIN. [Concomitant]
     Active Substance: GABAPENTIN
     Dosage: ONGOING:UNKNOWN
     Route: 048
     Dates: start: 20180529
  2. LORAZEPAM. [Concomitant]
     Active Substance: LORAZEPAM
     Dosage: ONGOING:UNKNOWN
     Route: 065
     Dates: start: 20180529
  3. PERCOCET [Concomitant]
     Active Substance: ACETAMINOPHEN\OXYCODONE HYDROCHLORIDE
     Dosage: ONGOING:UNKNOWN
     Route: 048
     Dates: start: 20180529
  4. EFFEXOR [Concomitant]
     Active Substance: VENLAFAXINE HYDROCHLORIDE
     Dosage: ONGOING:UNKNOWN
     Route: 048
     Dates: start: 20180529
  5. XELODA [Suspect]
     Active Substance: CAPECITABINE
     Indication: NEOPLASM MALIGNANT
     Dosage: 3 TABLETS,ONGOING
     Route: 048
     Dates: start: 20180611

REACTIONS (1)
  - Fatigue [Unknown]
